FAERS Safety Report 10209939 (Version 2)
Quarter: 2014Q2

REPORT INFORMATION
  Report Type: Spontaneous
  Country: JP (occurrence: JP)
  Receive Date: 20140602
  Receipt Date: 20140602
  Transmission Date: 20141212
  Serious: Yes (Other)
  Sender: FDA-Public Use
  Company Number: PHHY2014JP045882

PATIENT
  Age: 81 Year
  Sex: Male

DRUGS (4)
  1. EXELON PATCH [Suspect]
     Indication: DEMENTIA ALZHEIMER^S TYPE
     Dosage: 4.6 MG/24 HOURS (9 MG DAILY)
     Route: 062
     Dates: start: 20120128, end: 20140116
  2. EXELON PATCH [Suspect]
     Dosage: 9.5 MG/ 24 H, (18 MG DAILY)
     Route: 062
     Dates: start: 20120512
  3. EXELON PATCH [Suspect]
     Dosage: 4.6 MG/24 H, (9 MG DAILY)
     Route: 062
     Dates: start: 20120526, end: 20140116
  4. EXELON PATCH [Suspect]
     Dosage: 1.9 MG/24 HOURS (4.5 MG DAILY)
     Route: 062
     Dates: start: 20140117

REACTIONS (2)
  - Depressed level of consciousness [Unknown]
  - Convulsion [Recovered/Resolved]
